FAERS Safety Report 24063117 (Version 4)
Quarter: 2024Q3

REPORT INFORMATION
  Report Type: Spontaneous
  Country: US (occurrence: US)
  Receive Date: 20240709
  Receipt Date: 20240806
  Transmission Date: 20241017
  Serious: No
  Sender: TORRENT
  Company Number: US-TORRENT-00013658

PATIENT
  Age: 84 Year
  Sex: Female

DRUGS (4)
  1. DARIFENACIN [Suspect]
     Active Substance: DARIFENACIN
     Indication: Urinary incontinence
     Dosage: NDC: 13668-0203-30
     Route: 048
  2. DILTIAZEM [Concomitant]
     Active Substance: DILTIAZEM
     Indication: Product used for unknown indication
     Dosage: HALF A TABLET AT NIGHT
     Route: 065
  3. LATANOPROST [Concomitant]
     Active Substance: LATANOPROST
     Indication: Product used for unknown indication
     Dosage: AT NIGHT BEFORE BED
     Route: 065
  4. WARFARIN [Concomitant]
     Active Substance: WARFARIN
     Indication: Anticoagulant therapy
     Dosage: UNKNOWN
     Route: 065

REACTIONS (2)
  - Vision blurred [Recovering/Resolving]
  - Drug ineffective [Unknown]

NARRATIVE: CASE EVENT DATE: 20240301
